FAERS Safety Report 15290703 (Version 1)
Quarter: 2018Q3

REPORT INFORMATION
  Report Type: Spontaneous
  Country: US (occurrence: US)
  Receive Date: 20180805
  Receipt Date: 20180805
  Transmission Date: 20181010
  Serious: Yes (Other)
  Sender: FDA-Public Use
  Company Number: None

PATIENT
  Age: 71 Year
  Sex: Female
  Weight: 79.65 kg

DRUGS (11)
  1. IRON [Concomitant]
     Active Substance: IRON
  2. AMLODIPINE [Concomitant]
     Active Substance: AMLODIPINE BESYLATE
  3. LOSARTAN. [Concomitant]
     Active Substance: LOSARTAN
  4. TURMERIC [Concomitant]
     Active Substance: HERBALS\TURMERIC
  5. HORMONES [Concomitant]
     Active Substance: UNSPECIFIED INGREDIENT
  6. VITAMIN D [Concomitant]
     Active Substance: CHOLECALCIFEROL
  7. CALCIUM [Concomitant]
     Active Substance: CALCIUM
  8. VITAMIN B COMPLEX [Concomitant]
     Active Substance: CYANOCOBALAMIN\DEXPANTHENOL\NIACINAMIDE\PYRIDOXINE HYDROCHLORIDE\RIBOFLAVIN 5^-PHOSPHATE SODIUM\THIAMINE HYDROCHLORIDE\VITAMIN B COMPLEX
  9. TERBINAFINE HCL 250MG [Suspect]
     Active Substance: TERBINAFINE HYDROCHLORIDE
     Indication: ONYCHOMYCOSIS
     Dosage: ?          QUANTITY:1 TABLET(S);?
     Route: 048
  10. MULTI VITAMIN [Concomitant]
     Active Substance: VITAMINS
  11. GLOUCOSAMINE HCL [Concomitant]

REACTIONS (1)
  - Ageusia [None]

NARRATIVE: CASE EVENT DATE: 20180715
